FAERS Safety Report 9501602 (Version 2)
Quarter: 2013Q4

REPORT INFORMATION
  Report Type: Spontaneous
  Country: US (occurrence: US)
  Receive Date: 20130905
  Receipt Date: 20131217
  Transmission Date: 20140711
  Serious: Yes (Other)
  Sender: FDA-Public Use
  Company Number: US-JNJFOC-20130815354

PATIENT
  Sex: Male
  Weight: 86.64 kg

DRUGS (5)
  1. STELARA [Suspect]
     Indication: PSORIASIS
     Route: 058
     Dates: start: 20130503
  2. STELARA [Suspect]
     Indication: PSORIASIS
     Route: 058
     Dates: start: 20120106
  3. STELARA [Suspect]
     Indication: PSORIASIS
     Route: 058
     Dates: start: 201302
  4. PAXIL [Suspect]
     Indication: DEPRESSION
     Route: 048
     Dates: start: 20090901
  5. CLOBETASOL [Suspect]
     Indication: PSORIASIS
     Route: 065

REACTIONS (2)
  - Psoriatic arthropathy [Not Recovered/Not Resolved]
  - Anxiety [Recovering/Resolving]
